FAERS Safety Report 23680258 (Version 1)
Quarter: 2024Q1

REPORT INFORMATION
  Report Type: Spontaneous
  Country: US (occurrence: US)
  Receive Date: 20240327
  Receipt Date: 20240327
  Transmission Date: 20240409
  Serious: Yes (Other)
  Sender: FDA-Public Use
  Company Number: US-009507513-2403USA008559

PATIENT
  Sex: Male

DRUGS (2)
  1. KEYTRUDA [Suspect]
     Active Substance: PEMBROLIZUMAB
     Indication: Metastatic renal cell carcinoma
     Dosage: 200MG EVERY 21 DAYS
     Route: 042
     Dates: start: 202306
  2. LENVATINIB MESYLATE [Suspect]
     Active Substance: LENVATINIB MESYLATE
     Indication: Metastatic renal cell carcinoma
     Dosage: UNK
     Dates: start: 202306

REACTIONS (10)
  - Hypothyroidism [Unknown]
  - Renal disorder [Unknown]
  - Liver disorder [Unknown]
  - Palmar-plantar erythrodysaesthesia syndrome [Unknown]
  - Lung disorder [Unknown]
  - Gastrointestinal disorder [Unknown]
  - Adverse event [Unknown]
  - Anxiety [Unknown]
  - Depressed mood [Unknown]
  - Emotional disorder [Unknown]
